FAERS Safety Report 21714737 (Version 1)
Quarter: 2022Q4

REPORT INFORMATION
  Report Type: Spontaneous
  Country: US (occurrence: None)
  Receive Date: 20221209
  Receipt Date: 20221209
  Transmission Date: 20230113
  Serious: Yes (Hospitalization)
  Sender: FDA-Public Use
  Company Number: None

PATIENT
  Age: 72 Year
  Sex: Female
  Weight: 56 kg

DRUGS (2)
  1. DUPIXENT [Suspect]
     Active Substance: DUPILUMAB
     Indication: Dermatitis atopic
     Dosage: OTHER FREQUENCY : EVERY TWO WEEKS;?
     Route: 058
  2. FLUDROCORTISONE [Suspect]
     Active Substance: FLUDROCORTISONE

REACTIONS (6)
  - Dyspnoea [None]
  - Visual impairment [None]
  - Nausea [None]
  - Vomiting [None]
  - Cardiac disorder [None]
  - Therapy cessation [None]
